FAERS Safety Report 5982965-X (Version None)
Quarter: 2008Q4

REPORT INFORMATION
  Report Type: 
  Country: None (occurrence: None)
  Receive Date: 20081205
  Receipt Date: 20081205
  Transmission Date: 20090506
  Serious: Yes (Life-Threatening, Hospitalization, Other)
  Sender: FDA-Public Use
  Company Number: None

PATIENT
  Sex: Female
  Weight: 88.905 kg

DRUGS (1)
  1. IMDUR [Suspect]
     Indication: ANGINA PECTORIS
     Dosage: 30MG ONCE DAILY PO
     Route: 048
     Dates: start: 20071217, end: 20081124

REACTIONS (7)
  - ABDOMINAL PAIN [None]
  - FATIGUE [None]
  - HYPOTENSION [None]
  - NAUSEA [None]
  - PRODUCT QUALITY ISSUE [None]
  - SYNCOPE [None]
  - VERTIGO [None]
